FAERS Safety Report 5205661-5 (Version None)
Quarter: 2007Q1

REPORT INFORMATION
  Report Type: 
  Country: None (occurrence: None)
  Receive Date: 20070105
  Receipt Date: 20070105
  Transmission Date: 20070707
  Serious: Yes (Life-Threatening)
  Sender: FDA-Public Use
  Company Number: None

PATIENT
  Sex: Male
  Weight: 110 kg

DRUGS (12)
  1. HEPARIN [Suspect]
     Indication: PROPHYLAXIS
     Dosage: 5000 UNITS 1 HR IV
     Route: 042
     Dates: start: 20060814, end: 20060815
  2. HEPARIN [Suspect]
     Indication: PULMONARY EMBOLISM
     Dosage: 5000 UNITS 1 HR IV
     Route: 042
     Dates: start: 20060814, end: 20060815
  3. ENOXAPARIN SODIUM [Suspect]
     Indication: PROPHYLAXIS
     Dates: start: 20060808, end: 20060814
  4. ENOXAPARIN SODIUM [Suspect]
     Indication: PULMONARY EMBOLISM
     Dates: start: 20060808, end: 20060814
  5. FUROSEMIDE [Concomitant]
  6. ACETYLCYSTEINE [Concomitant]
  7. DEXAMETHASONE [Concomitant]
  8. DIPHENHYDRAMINE HCL [Concomitant]
  9. METOPROLOL SUCCINATE [Concomitant]
  10. INSULIN [Concomitant]
  11. ISOSORBIDE MONONITRATE [Concomitant]
  12. GLIPIZIDE [Concomitant]

REACTIONS (1)
  - HEPARIN-INDUCED THROMBOCYTOPENIA [None]
